FAERS Safety Report 13898539 (Version 2)
Quarter: 2017Q4

REPORT INFORMATION
  Report Type: Report from Study
  Country: JP (occurrence: JP)
  Receive Date: 20170824
  Receipt Date: 20171031
  Transmission Date: 20180320
  Serious: Yes (Hospitalization)
  Sender: FDA-Public Use
  Company Number: JP-EISAI MEDICAL RESEARCH-EC-2017-030456

PATIENT
  Age: 66 Year
  Sex: Female
  Weight: 75 kg

DRUGS (14)
  1. LEVOTHYROXINE SODIUM. [Concomitant]
     Active Substance: LEVOTHYROXINE SODIUM
  2. HIRUDOID [Concomitant]
     Active Substance: GLYCOSAMINOGLYCANS
  3. URSODEOXYCHOLIC ACID [Concomitant]
     Active Substance: URSODIOL
  4. ACTEMRA [Concomitant]
     Active Substance: TOCILIZUMAB
  5. LENVIMA [Suspect]
     Active Substance: LENVATINIB
     Indication: PAPILLARY THYROID CANCER
     Route: 048
     Dates: start: 20150915, end: 20150929
  6. LENVIMA [Suspect]
     Active Substance: LENVATINIB
     Route: 048
     Dates: start: 20151007, end: 20151007
  7. CARBAZOCHROME SODIUM SULFONATE HYDRATE [Concomitant]
  8. LENVIMA [Suspect]
     Active Substance: LENVATINIB
     Route: 048
     Dates: start: 20160204
  9. OLMESARTAN MEDOXOMIL. [Concomitant]
     Active Substance: OLMESARTAN MEDOXOMIL
  10. LENVIMA [Suspect]
     Active Substance: LENVATINIB
     Route: 048
     Dates: start: 20150930, end: 20151003
  11. LENVIMA [Suspect]
     Active Substance: LENVATINIB
     Route: 048
     Dates: start: 20151014, end: 20151126
  12. AMLODIPINE BESILATE [Concomitant]
     Active Substance: AMLODIPINE BESYLATE
  13. TRANEXAMIC ACID. [Concomitant]
     Active Substance: TRANEXAMIC ACID
  14. ALFACALCIDOL [Concomitant]
     Active Substance: ALFACALCIDOL

REACTIONS (1)
  - Tumour haemorrhage [Recovered/Resolved]

NARRATIVE: CASE EVENT DATE: 20151126
